FAERS Safety Report 5564727-0 (Version None)
Quarter: 2007Q4

REPORT INFORMATION
  Report Type: 
  Country: None (occurrence: None)
  Receive Date: 20071214
  Receipt Date: 20071214
  Transmission Date: 20080405
  Serious: Yes (Hospitalization)
  Sender: FDA-Public Use
  Company Number: None

PATIENT
  Age: 13 Month
  Sex: Male
  Weight: 9.75 kg

DRUGS (1)
  1. GABITRIL [Suspect]
     Indication: OTITIS MEDIA
     Dosage: 8 MG  QHS  PO
     Route: 048
     Dates: start: 20071209, end: 20071211

REACTIONS (3)
  - CONVULSION [None]
  - DRUG DISPENSING ERROR [None]
  - WRONG DRUG ADMINISTERED [None]
